FAERS Safety Report 19039318 (Version 3)
Quarter: 2021Q2

REPORT INFORMATION
  Report Type: Report from Study
  Country: SE (occurrence: SE)
  Receive Date: 20210322
  Receipt Date: 20210401
  Transmission Date: 20210717
  Serious: Yes (Other)
  Sender: FDA-Public Use
  Company Number: SE-ALNYLAM PHARMACEUTICALS, INC.-ALN-2021-000659

PATIENT

DRUGS (4)
  1. GIVLAARI [Suspect]
     Active Substance: GIVOSIRAN SODIUM
     Dosage: UNK, MONTHLY
     Route: 058
     Dates: start: 20200219
  2. MIRENA [Concomitant]
     Active Substance: LEVONORGESTREL
     Indication: CONTRACEPTION
     Dosage: 20 MICROGRAM, QD
  3. GIVLAARI [Suspect]
     Active Substance: GIVOSIRAN SODIUM
     Indication: PORPHYRIA ACUTE
     Dosage: 0.77 MILLILITER, Q6W, 189 MG/ML
     Route: 058
     Dates: start: 20210128
  4. ESOMEPRAZOL [Concomitant]
     Active Substance: ESOMEPRAZOLE
     Indication: GASTRITIS
     Dosage: 40 MILLIGRAM, PRN
     Route: 048
     Dates: start: 20200219

REACTIONS (1)
  - Blood homocysteine increased [Not Recovered/Not Resolved]

NARRATIVE: CASE EVENT DATE: 20210311
